FAERS Safety Report 7833395-7 (Version None)
Quarter: 2011Q4

REPORT INFORMATION
  Report Type: 
  Country: None (occurrence: None)
  Receive Date: 20111020
  Receipt Date: 20111010
  Transmission Date: 20120403
  Serious: Yes (Hospitalization)
  Sender: FDA-Public Use
  Company Number: US-CYPR-2011-000051

PATIENT
  Sex: Male
  Weight: 136.0791 kg

DRUGS (27)
  1. ROSUVASTATIN [Concomitant]
  2. LASIX [Concomitant]
  3. NOVOLIN 70/30 [Concomitant]
  4. WELLBUTRIN [Concomitant]
  5. CLOPIDOGREL [Suspect]
     Indication: ANTIPLATELET THERAPY
     Dosage: 75 MG QD ORAL
     Route: 048
     Dates: start: 20110511, end: 20110818
  6. ENABLEX [Concomitant]
  7. CALCIUM CARBONATE [Concomitant]
  8. CYPHER STENT [Concomitant]
  9. NITROGLYCERIN [Concomitant]
  10. ZANTAC [Concomitant]
  11. LORTAB [Concomitant]
  12. COREG [Concomitant]
  13. LORTAB [Concomitant]
  14. FOLIC ACID [Concomitant]
  15. LEVOTHYROXINE SODIUM [Concomitant]
  16. NORVASC [Concomitant]
  17. ABILIFY [Concomitant]
  18. XANAX [Concomitant]
  19. MULTI-VITAMIN [Concomitant]
  20. AZULFIDINE [Concomitant]
  21. ALENDRONATE SODIUM [Concomitant]
  22. XIENCE [Concomitant]
  23. ASPIRIN [Suspect]
     Indication: CORONARY ARTERY DISEASE
     Dosage: (81 MG QD ORAL), (325 MG QD ORAL)
     Route: 048
     Dates: start: 20100305
  24. EFFEXOR [Concomitant]
  25. ORENCIA [Concomitant]
  26. VITAMIN D [Concomitant]
  27. PLAQUENIL [Concomitant]

REACTIONS (3)
  - ANGINA UNSTABLE [None]
  - CORONARY ARTERY STENOSIS [None]
  - DYSPNOEA EXERTIONAL [None]
